FAERS Safety Report 5834837-9 (Version None)
Quarter: 2008Q3

REPORT INFORMATION
  Report Type: 
  Country: None (occurrence: None)
  Receive Date: 20080805
  Receipt Date: 20080725
  Transmission Date: 20090109
  Serious: Yes (Hospitalization, Other)
  Sender: FDA-Public Use
  Company Number: US-ELI_LILLY_AND_COMPANY-US200807005001

PATIENT
  Sex: Female

DRUGS (3)
  1. HUMULIN N [Suspect]
  2. HUMULIN L [Suspect]
  3. HUMULIN R [Suspect]

REACTIONS (9)
  - ANXIETY [None]
  - BLINDNESS [None]
  - BLOOD GLUCOSE DECREASED [None]
  - BLOOD GLUCOSE INCREASED [None]
  - COMA [None]
  - DRUG EXPOSURE DURING PREGNANCY [None]
  - INSOMNIA [None]
  - LOSS OF CONSCIOUSNESS [None]
  - VISUAL ACUITY REDUCED [None]
